FAERS Safety Report 14300384 (Version 4)
Quarter: 2018Q1

REPORT INFORMATION
  Report Type: Spontaneous
  Country: CA (occurrence: CA)
  Receive Date: 20171219
  Receipt Date: 20180201
  Transmission Date: 20180509
  Serious: No
  Sender: FDA-Public Use
  Company Number: US-PFIZER INC-2017536045

PATIENT
  Age: 58 Year
  Sex: Female

DRUGS (1)
  1. ADVIL MUSCLE AND JOINT [Suspect]
     Active Substance: IBUPROFEN
     Indication: PAIN
     Dosage: 1 DF, EVERY 6-8 HOURS
     Route: 048
     Dates: start: 20171213, end: 20171213

REACTIONS (5)
  - Rash pruritic [Recovered/Resolved]
  - Swollen tongue [Recovered/Resolved]
  - Paraesthesia oral [Recovered/Resolved]
  - Rash erythematous [Recovered/Resolved]
  - Pain in jaw [Recovered/Resolved]
